FAERS Safety Report 5914121-5 (Version None)
Quarter: 2008Q3

REPORT INFORMATION
  Report Type: 
  Country: None (occurrence: None)
  Receive Date: 20080909
  Receipt Date: 20071218
  Transmission Date: 20090109
  Serious: Yes (Hospitalization, Other)
  Sender: FDA-Public Use
  Company Number: 163-20785-07091400 (0)

PATIENT
  Age: 78 Year
  Sex: Female
  Weight: 62 kg

DRUGS (13)
  1. THALOMID [Suspect]
     Indication: SYSTEMIC INFLAMMATORY RESPONSE SYNDROME
     Dosage: 200 MG, 4 IN 1 D, ORAL
     Route: 048
     Dates: start: 20070821, end: 20070925
  2. VERSED [Concomitant]
  3. DEMEROL [Concomitant]
  4. SENSIPAR (CINACALCET HYDROCHLORIDE) (90 MILLIGRAM, TABLETS) [Concomitant]
  5. PRAVASTATIN SODIUM (PRAVASTATIN SODIUM) (20 MILLIGRAM, TABLETS) [Concomitant]
  6. ERGOCALCIFEROL (ERGOCALCIFEROL) [Concomitant]
  7. DIALYVITE (VITAMINS WITH MINERALS) (TABLETS) [Concomitant]
  8. RENAGEL (SEVELAMER HYDROCHLORIDE) (800 MILLIGRAM, TABLETS) [Concomitant]
  9. PROCARDIA (NIFEDIPINE) (60 MILLIGRAM, TABLETS) [Concomitant]
  10. METOPROLOL (METOPROLOL) (250 MILLIGRAM, TABLETS) [Concomitant]
  11. ISOSORBIDE MONONITRATE (ISOSORBIDE MONONITRATE) (30 DOSAGE FORMS, TABL [Concomitant]
  12. ENALAPRIL (ENALAPRIL) (20 MILLIGRAM, TABLETS) [Concomitant]
  13. CLONIDINE (CLONIDINE) (0.2 MILLIGRAM, TABLETS) [Concomitant]

REACTIONS (2)
  - ANAEMIA [None]
  - GASTROINTESTINAL HAEMORRHAGE [None]
